FAERS Safety Report 6074194-9 (Version None)
Quarter: 2009Q1

REPORT INFORMATION
  Report Type: 
  Country: None (occurrence: None)
  Receive Date: 20090211
  Receipt Date: 20090202
  Transmission Date: 20090719
  Serious: Yes (Hospitalization)
  Sender: FDA-Public Use
  Company Number: FR-AVENTIS-200910338FR

PATIENT
  Age: 86 Year
  Sex: Female

DRUGS (9)
  1. ARAVA [Suspect]
     Indication: RHEUMATOID ARTHRITIS
     Route: 048
  2. LANZOR [Suspect]
     Route: 048
  3. ARICEPT [Suspect]
     Route: 048
     Dates: end: 20080620
  4. FLODIL                             /00646501/ [Suspect]
     Route: 048
  5. CORTANCYL [Concomitant]
     Indication: RHEUMATOID ARTHRITIS
     Route: 048
  6. RILMENIDINE [Concomitant]
     Route: 048
  7. DIFFU K [Concomitant]
     Route: 048
  8. CACIT D3 [Concomitant]
     Route: 048
  9. ACTONEL [Concomitant]
     Route: 048

REACTIONS (5)
  - BLOOD ALKALINE PHOSPHATASE INCREASED [None]
  - CHOLESTASIS [None]
  - GAMMA-GLUTAMYLTRANSFERASE INCREASED [None]
  - MALAISE [None]
  - VOMITING [None]
